FAERS Safety Report 5616662-7 (Version None)
Quarter: 2008Q1

REPORT INFORMATION
  Report Type: 
  Country: None (occurrence: None)
  Receive Date: 20080207
  Receipt Date: 20080131
  Transmission Date: 20080703
  Serious: Yes (Other)
  Sender: FDA-Public Use
  Company Number: PHEH2008US01530

PATIENT
  Age: 46 Year
  Sex: Female

DRUGS (2)
  1. FEMARA [Suspect]
     Indication: BREAST CANCER
     Dosage: 2.5 MG, QD
     Route: 048
     Dates: start: 20071101
  2. ZOMETA [Suspect]
     Indication: BREAST CANCER
     Dosage: 4 MG, QMO
     Route: 042
     Dates: start: 20071101

REACTIONS (9)
  - BONE PAIN [None]
  - CONSTIPATION [None]
  - DEPRESSION SUICIDAL [None]
  - DRUG INEFFECTIVE [None]
  - HOT FLUSH [None]
  - HYPERSENSITIVITY [None]
  - INFLUENZA LIKE ILLNESS [None]
  - LYMPHOEDEMA [None]
  - TUMOUR MARKER INCREASED [None]
